FAERS Safety Report 9144411 (Version 2)
Quarter: 2013Q2

REPORT INFORMATION
  Report Type: Spontaneous
  Country: US (occurrence: US)
  Receive Date: 20130306
  Receipt Date: 20130524
  Transmission Date: 20140414
  Serious: Yes (Other)
  Sender: FDA-Public Use
  Company Number: US-ASTRAZENECA-2013SE13056

PATIENT
  Age: 54 Year
  Sex: Female
  Weight: 73.5 kg

DRUGS (5)
  1. FASLODEX [Suspect]
     Indication: BREAST CANCER
     Route: 030
     Dates: start: 201301
  2. MORPHINE SULFATE [Suspect]
     Indication: BACK PAIN
     Route: 065
  3. NEURONTIN [Concomitant]
     Indication: NEUROPATHY PERIPHERAL
  4. PAMELOR [Concomitant]
     Indication: NEUROPATHY PERIPHERAL
  5. STEROID [Concomitant]
     Route: 048

REACTIONS (10)
  - Metastases to spine [Unknown]
  - Memory impairment [Unknown]
  - Bone pain [Unknown]
  - Activities of daily living impaired [Unknown]
  - Local swelling [Unknown]
  - Somnolence [Unknown]
  - Adverse event [Unknown]
  - Confusional state [Recovered/Resolved]
  - Asthenia [Recovered/Resolved]
  - Fatigue [Recovered/Resolved]
